FAERS Safety Report 4358778-1 (Version None)
Quarter: 2004Q2

REPORT INFORMATION
  Report Type: 
  Country: None (occurrence: None)
  Receive Date: 20040511
  Receipt Date: 20040429
  Transmission Date: 20050107
  Serious: Yes (Hospitalization)
  Sender: FDA-Public Use
  Company Number: US-JNJFOC-20040300211

PATIENT
  Age: 59 Year
  Sex: Male

DRUGS (4)
  1. DURAGESIC [Suspect]
     Indication: CANCER PAIN
     Dosage: 75 UG/HR, TRANSDERMAL
     Route: 062
  2. DURAGESIC [Suspect]
     Indication: CANCER PAIN
     Dosage: 100 UG/HR, TRANSDERMAL
     Route: 062
  3. DURAGESIC [Suspect]
     Indication: CANCER PAIN
     Dosage: 125 UG/HR, TRANSDERMAL
     Route: 062
  4. DURAGESIC [Suspect]
     Indication: CANCER PAIN
     Dosage: 150 UG/HR, 1 IN 72 HOUR, TRANSDERMAL
     Route: 062
     Dates: start: 20031101

REACTIONS (12)
  - APPLICATION SITE ERYTHEMA [None]
  - BLOOD DISORDER [None]
  - DEHYDRATION [None]
  - DIARRHOEA [None]
  - DRUG INEFFECTIVE [None]
  - DRUG WITHDRAWAL SYNDROME [None]
  - HYPERHIDROSIS [None]
  - INFECTION [None]
  - NAUSEA [None]
  - PHARMACEUTICAL PRODUCT COMPLAINT [None]
  - TREMOR [None]
  - VOMITING [None]
